FAERS Safety Report 7601239-4 (Version None)
Quarter: 2011Q3

REPORT INFORMATION
  Report Type: 
  Country: None (occurrence: None)
  Receive Date: 20110711
  Receipt Date: 20110701
  Transmission Date: 20111222
  Serious: Yes (Hospitalization)
  Sender: FDA-Public Use
  Company Number: US-ASTRAZENECA-2011SE40029

PATIENT
  Age: 63 Year
  Sex: Male

DRUGS (4)
  1. ATACAND HCT [Suspect]
     Route: 048
  2. PROCARDIA [Concomitant]
  3. METFORMIN HCL [Concomitant]
  4. LIPITOR [Concomitant]

REACTIONS (3)
  - HYPERTENSION [None]
  - SWELLING [None]
  - MALAISE [None]
